FAERS Safety Report 7415822-2 (Version None)
Quarter: 2011Q2

REPORT INFORMATION
  Report Type: 
  Country: None (occurrence: None)
  Receive Date: 20110414
  Receipt Date: 20110405
  Transmission Date: 20111010
  Serious: Yes (Other)
  Sender: FDA-Public Use
  Company Number: US-ASTRAZENECA-2011SE19809

PATIENT
  Sex: Female

DRUGS (2)
  1. REMERON [Concomitant]
  2. SEROQUEL [Suspect]
     Route: 048

REACTIONS (4)
  - INSOMNIA [None]
  - DRUG DOSE OMISSION [None]
  - PANIC ATTACK [None]
  - ARTHROPATHY [None]
